FAERS Safety Report 14285782 (Version 3)
Quarter: 2019Q4

REPORT INFORMATION
  Report Type: Spontaneous
  Country: GB (occurrence: US)
  Receive Date: 20171214
  Receipt Date: 20191205
  Transmission Date: 20200122
  Serious: No
  Sender: FDA-Public Use
  Company Number: US-ASTELLAS-2017US027981

PATIENT
  Sex: Female

DRUGS (3)
  1. TARCEVA [Suspect]
     Active Substance: ERLOTINIB HYDROCHLORIDE
     Indication: LUNG NEOPLASM MALIGNANT
     Route: 048
     Dates: start: 20130813
  2. TARCEVA [Suspect]
     Active Substance: ERLOTINIB HYDROCHLORIDE
     Indication: MALIGNANT MELANOMA
     Route: 048
     Dates: start: 20130812
  3. TARCEVA [Suspect]
     Active Substance: ERLOTINIB HYDROCHLORIDE
     Route: 048
     Dates: start: 20180201

REACTIONS (17)
  - Gastrointestinal disorder [Unknown]
  - Skin atrophy [Unknown]
  - Abdominal discomfort [Unknown]
  - Rash [Unknown]
  - Erythema [Unknown]
  - Eczema [Unknown]
  - Hair disorder [Unknown]
  - Dry skin [Unknown]
  - Dry mouth [Unknown]
  - Irritable bowel syndrome [Unknown]
  - Intentional product use issue [Unknown]
  - Diarrhoea [Unknown]
  - Fatigue [Unknown]
  - Off label use [Unknown]
  - Gingival recession [Unknown]
  - Dry eye [Unknown]
  - Skin disorder [Unknown]
